FAERS Safety Report 18348222 (Version 1)
Quarter: 2020Q4

REPORT INFORMATION
  Report Type: Spontaneous
  Country: US (occurrence: US)
  Receive Date: 20201005
  Receipt Date: 20201005
  Transmission Date: 20210114
  Serious: No
  Sender: FDA-Public Use
  Company Number: None

PATIENT
  Age: 68 Year
  Sex: Male
  Weight: 53 kg

DRUGS (2)
  1. DEFINITY [Concomitant]
     Active Substance: PERFLUTREN
     Dates: start: 20201005, end: 20201005
  2. DEFINITY [Suspect]
     Active Substance: PERFLUTREN
     Route: 017
     Dates: start: 20201005

REACTIONS (1)
  - Back pain [None]

NARRATIVE: CASE EVENT DATE: 20201005
